FAERS Safety Report 5332718-0 (Version None)
Quarter: 2007Q2

REPORT INFORMATION
  Report Type: 
  Country: None (occurrence: None)
  Receive Date: 20070523
  Receipt Date: 20070511
  Transmission Date: 20071010
  Serious: Yes (Death)
  Sender: FDA-Public Use
  Company Number: FR-PFIZER INC-2007038474

PATIENT
  Age: 54 Year
  Sex: Female
  Weight: 65 kg

DRUGS (4)
  1. AMLOR [Suspect]
  2. VALPROATE SODIUM [Suspect]
     Route: 048
     Dates: start: 20070308, end: 20070308
  3. HALOPERIDOL DECANOATE [Concomitant]
  4. HALOPERIDOL [Concomitant]

REACTIONS (6)
  - BRAIN OEDEMA [None]
  - CARDIO-RESPIRATORY ARREST [None]
  - CIRCULATORY COLLAPSE [None]
  - COMA [None]
  - MIOSIS [None]
  - OVERDOSE [None]
